FAERS Safety Report 5333712-6 (Version None)
Quarter: 2007Q2

REPORT INFORMATION
  Report Type: 
  Country: None (occurrence: None)
  Receive Date: 20070524
  Receipt Date: 20070514
  Transmission Date: 20071010
  Serious: Yes (Hospitalization)
  Sender: FDA-Public Use
  Company Number: B0471531A

PATIENT
  Age: 77 Year
  Sex: Female

DRUGS (2)
  1. ARIXTRA [Suspect]
     Dosage: 2.5MG PER DAY
     Route: 058
     Dates: start: 20070123
  2. ASPIRIN [Suspect]
     Route: 048
     Dates: start: 20070411, end: 20070415

REACTIONS (9)
  - ANAEMIA [None]
  - ANOREXIA [None]
  - ASTHENIA [None]
  - GASTROINTESTINAL HAEMORRHAGE [None]
  - GASTROINTESTINAL ULCER HAEMORRHAGE [None]
  - HIATUS HERNIA [None]
  - HYPOKALAEMIA [None]
  - MELAENA [None]
  - PALLOR [None]
